FAERS Safety Report 9357633 (Version 2)
Quarter: 2013Q3

REPORT INFORMATION
  Report Type: Spontaneous
  Country: US (occurrence: US)
  Receive Date: 20130620
  Receipt Date: 20130710
  Transmission Date: 20140515
  Serious: No
  Sender: FDA-Public Use
  Company Number: US-ASTRAZENECA-2013SE42440

PATIENT
  Age: 49 Year
  Sex: Female
  Weight: 110.7 kg

DRUGS (12)
  1. BRILINTA [Suspect]
     Indication: ACUTE CORONARY SYNDROME
     Route: 048
     Dates: start: 20130402
  2. ASPIRIN [Suspect]
     Indication: ANTICOAGULANT THERAPY
     Route: 065
  3. LOPRESSOR [Concomitant]
  4. LIPITOR [Concomitant]
  5. PROTONIX [Concomitant]
  6. METFORMIN [Concomitant]
  7. PAXIL [Concomitant]
  8. SYNTHROID [Concomitant]
  9. CALCIUM [Concomitant]
  10. VIT D [Concomitant]
  11. LOSARTAN [Concomitant]
  12. HCTZ [Concomitant]

REACTIONS (1)
  - Haemarthrosis [Recovered/Resolved]
